FAERS Safety Report 8483028-4 (Version None)
Quarter: 2012Q3

REPORT INFORMATION
  Report Type: 
  Country: None (occurrence: None)
  Receive Date: 20120702
  Receipt Date: 20120619
  Transmission Date: 20120928
  Serious: No
  Sender: FDA-Public Use
  Company Number: US-ASTRAZENECA-2009SE29667

PATIENT
  Age: 52 Year
  Sex: Female
  Weight: 70.3 kg

DRUGS (6)
  1. SEROQUEL [Suspect]
     Route: 048
  2. CELEXA [Concomitant]
  3. SEROQUEL [Suspect]
     Indication: BIPOLAR DISORDER
     Route: 048
  4. NEXIUM [Suspect]
     Route: 048
  5. SEROQUEL [Suspect]
     Route: 048
  6. SEROQUEL [Suspect]
     Route: 048

REACTIONS (8)
  - HEART RATE INCREASED [None]
  - INSOMNIA [None]
  - DYSPHAGIA [None]
  - NAUSEA [None]
  - DIARRHOEA [None]
  - HALLUCINATION, VISUAL [None]
  - DRUG DOSE OMISSION [None]
  - PALPITATIONS [None]
